FAERS Safety Report 9353007 (Version 1)
Quarter: 2013Q2

REPORT INFORMATION
  Report Type: Spontaneous
  Country: US (occurrence: None)
  Receive Date: 20130614
  Receipt Date: 20130614
  Transmission Date: 20140414
  Serious: No
  Sender: FDA-Public Use
  Company Number: None

PATIENT
  Sex: Female

DRUGS (1)
  1. DIAZEPAM [Suspect]
     Route: 048
     Dates: start: 20130312, end: 20130508

REACTIONS (2)
  - Anxiety [None]
  - Depression [None]
